FAERS Safety Report 22356330 (Version 1)
Quarter: 2023Q2

REPORT INFORMATION
  Report Type: Spontaneous
  Country: US (occurrence: US)
  Receive Date: 20230523
  Receipt Date: 20230523
  Transmission Date: 20230722
  Serious: No
  Sender: FDA-Public Use
  Company Number: US-BRISTOL-MYERS SQUIBB COMPANY-2023-072734

PATIENT
  Age: 67 Year
  Sex: Female
  Weight: 56 kg

DRUGS (1)
  1. EMPLICITI [Suspect]
     Active Substance: ELOTUZUMAB
     Indication: Plasma cell leukaemia
     Dosage: DOSE: 564 MG - 10MG/KG; FREQUENCY: ONCE WEEKLY - DAYS 1, 8 AND 15 WITH A 28-DAY CYCLE; STRENGTH: 300
     Route: 042
     Dates: start: 20230118

REACTIONS (2)
  - Product preparation issue [Unknown]
  - Off label use [Unknown]

NARRATIVE: CASE EVENT DATE: 20230517
